FAERS Safety Report 9297872 (Version 1)
Quarter: 2013Q2

REPORT INFORMATION
  Report Type: Report from Study
  Country: AR (occurrence: AR)
  Receive Date: 20130520
  Receipt Date: 20130520
  Transmission Date: 20140414
  Serious: Yes (Hospitalization)
  Sender: FDA-Public Use
  Company Number: PHHY2013AR049897

PATIENT
  Age: 90 Year
  Sex: Female

DRUGS (1)
  1. DIOVAN D [Suspect]
     Dosage: UNK UKN, UNK
     Route: 048
     Dates: start: 2012

REACTIONS (1)
  - Pelvic fracture [Recovering/Resolving]
